FAERS Safety Report 21200738 (Version 1)
Quarter: 2022Q3

REPORT INFORMATION
  Report Type: Spontaneous
  Country: GB (occurrence: GB)
  Receive Date: 20220811
  Receipt Date: 20220811
  Transmission Date: 20221026
  Serious: Yes (Other)
  Sender: FDA-Public Use
  Company Number: None

PATIENT
  Age: 47 Year
  Sex: Female

DRUGS (2)
  1. DOXYCYCLINE [Interacting]
     Active Substance: DOXYCYCLINE
     Indication: Respiratory tract infection
     Dosage: 200 MILLIGRAM DAILY; UNIT DOSE : 100 MG, FREQUENCY ; 2, FREQUENCY TIME : 1 DAYS, THERAPY DURATION: 4
     Route: 065
     Dates: start: 20220625, end: 20220629
  2. TEGRETOL [Interacting]
     Active Substance: CARBAMAZEPINE
     Indication: Trigeminal neuralgia
     Dosage: 800 MILLIGRAM DAILY; UNIT DOSE : 400 MG, FREQUENCY ; 2, FREQUENCY TIME : 1 DAYS
     Route: 065

REACTIONS (3)
  - Drug interaction [Not Recovered/Not Resolved]
  - Trigeminal neuralgia [Unknown]
  - Condition aggravated [Unknown]

NARRATIVE: CASE EVENT DATE: 20220629
